FAERS Safety Report 15500740 (Version 1)
Quarter: 2018Q4

REPORT INFORMATION
  Report Type: Spontaneous
  Country: US (occurrence: US)
  Receive Date: 20181015
  Receipt Date: 20181015
  Transmission Date: 20190205
  Serious: Yes (Hospitalization)
  Sender: FDA-Public Use
  Company Number: US-IGSA-SR10007112

PATIENT
  Sex: Female

DRUGS (1)
  1. GAMASTAN S/D [Suspect]
     Active Substance: HUMAN IMMUNOGLOBULIN A\HUMAN IMMUNOGLOBULIN G
     Indication: IMMUNODEFICIENCY COMMON VARIABLE
     Dosage: 8 ML, Q.WK.
     Route: 030

REACTIONS (5)
  - Chills [Unknown]
  - Chest pain [Unknown]
  - Swelling face [Unknown]
  - Dyspnoea [Unknown]
  - Electrocardiogram abnormal [Unknown]
